FAERS Safety Report 7403570-4 (Version None)
Quarter: 2011Q1

REPORT INFORMATION
  Report Type: 
  Country: None (occurrence: None)
  Receive Date: 20110331
  Receipt Date: 20110321
  Transmission Date: 20110831
  Serious: Yes (Death, Hospitalization)
  Sender: FDA-Public Use
  Company Number: ALK_01602_2011

PATIENT
  Sex: Male
  Weight: 90.7194 kg

DRUGS (4)
  1. VASOTEC [Concomitant]
  2. WELLBUTRIN [Concomitant]
  3. VIVITROL [Suspect]
     Indication: ALCOHOLISM
     Dosage: (INTRAMUSCULAR)
     Route: 030
     Dates: start: 20100115, end: 20100423
  4. HYDROCHLOROTHIAZIDE [Concomitant]

REACTIONS (4)
  - WEIGHT DECREASED [None]
  - FALL [None]
  - INJURY [None]
  - HEAD INJURY [None]
